FAERS Safety Report 9825284 (Version 1)
Quarter: 2013Q4

REPORT INFORMATION
  Report Type: Spontaneous
  Country: US (occurrence: None)
  Receive Date: 20131028
  Receipt Date: 20131028
  Transmission Date: 20140711
  Serious: Yes (Other)
  Sender: FDA-Public Use
  Company Number: 2013US002111

PATIENT
  Age: 93 Year
  Sex: Female
  Weight: 93 kg

DRUGS (4)
  1. ICLUSIG [Suspect]
     Indication: ACUTE LYMPHOCYTIC LEUKAEMIA
     Route: 048
     Dates: start: 20130530
  2. TRIAM(TRIAMCINOLONE) [Concomitant]
  3. AMLODIPINE(AMLODIPINE) [Concomitant]
  4. HUMALOG MIX(INSULIN LISPRO, INSULIN LISPRO PROTAMINE [Concomitant]

REACTIONS (2)
  - Dyspnoea [None]
  - Fatigue [None]
